FAERS Safety Report 12829120 (Version 1)
Quarter: 2016Q4

REPORT INFORMATION
  Report Type: Spontaneous
  Country: US (occurrence: US)
  Receive Date: 20161007
  Receipt Date: 20161007
  Transmission Date: 20170207
  Serious: No
  Sender: FDA-Public Use
  Company Number: US-SA-2015SA222747

PATIENT
  Age: 46 Year
  Sex: Female

DRUGS (6)
  1. AMBIEN [Concomitant]
     Active Substance: ZOLPIDEM TARTRATE
  2. LAMICTAL [Concomitant]
     Active Substance: LAMOTRIGINE
  3. TOVIAZ [Concomitant]
     Active Substance: FESOTERODINE FUMARATE
  4. ZOLOFT [Concomitant]
     Active Substance: SERTRALINE HYDROCHLORIDE
  5. AUBAGIO [Suspect]
     Active Substance: TERIFLUNOMIDE
     Indication: MULTIPLE SCLEROSIS
     Route: 048
  6. NORCO [Concomitant]
     Active Substance: ACETAMINOPHEN\HYDROCODONE BITARTRATE

REACTIONS (6)
  - Fatigue [Not Recovered/Not Resolved]
  - Fall [Unknown]
  - Memory impairment [Unknown]
  - Fatigue [Unknown]
  - Alopecia [Not Recovered/Not Resolved]
  - Headache [Unknown]
